FAERS Safety Report 11933841 (Version 1)
Quarter: 2016Q1

REPORT INFORMATION
  Report Type: Spontaneous
  Country: JP (occurrence: JP)
  Receive Date: 20160121
  Receipt Date: 20160121
  Transmission Date: 20160526
  Serious: Yes (Other)
  Sender: FDA-Public Use
  Company Number: JP-WATSON-2016-00752

PATIENT
  Age: 50 Year
  Sex: Male
  Weight: 74 kg

DRUGS (6)
  1. PROPOFOL (UNKNOWN) [Suspect]
     Active Substance: PROPOFOL
     Indication: GENERAL ANAESTHESIA
     Dosage: 180 MG, SINGLE
     Route: 042
  2. ROCURONIUM [Concomitant]
     Active Substance: ROCURONIUM BROMIDE
     Indication: GENERAL ANAESTHESIA
     Dosage: 30 MG, SINGLE
     Route: 042
  3. REMIFENTANIL (UNKNOWN) [Suspect]
     Active Substance: REMIFENTANIL
     Indication: GENERAL ANAESTHESIA
     Dosage: 0.1 ?G/KG/MIN
     Route: 042
  4. ROCURONIUM [Concomitant]
     Active Substance: ROCURONIUM BROMIDE
     Dosage: 7 ?G/KG/MIN
     Route: 042
  5. REMIFENTANIL (UNKNOWN) [Suspect]
     Active Substance: REMIFENTANIL
     Dosage: 0.1?0.2 ?G/KG/MIN
     Route: 042
  6. PROPOFOL (UNKNOWN) [Suspect]
     Active Substance: PROPOFOL
     Dosage: 4?5 MG/KG/H
     Route: 042

REACTIONS (1)
  - Accelerated idioventricular rhythm [Recovered/Resolved]
